FAERS Safety Report 6542782-9 (Version None)
Quarter: 2010Q1

REPORT INFORMATION
  Report Type: 
  Country: None (occurrence: None)
  Receive Date: 20100114
  Receipt Date: 20091230
  Transmission Date: 20100710
  Serious: Yes (Hospitalization, Other)
  Sender: FDA-Public Use
  Company Number: AUR-APL-2010-00014

PATIENT
  Age: 77 Year
  Sex: Female
  Weight: 70.7611 kg

DRUGS (7)
  1. LISINOPRIL AND HYDROCHLOROTHIAZIDE [Suspect]
     Dosage: 20/25MG,
  2. LIPITOR [Suspect]
     Indication: BLOOD CHOLESTEROL INCREASED
     Dosage: 40MG, DAILY,
  3. LYRICA [Suspect]
     Indication: NEUROPATHY PERIPHERAL
     Dosage: 75MG - BID -
  4. FENOFIBRATE [Suspect]
     Indication: BLOOD TRIGLYCERIDES INCREASED
  5. OMEPRAZOLE [Concomitant]
  6. VICODIN [Concomitant]
  7. AMITRIPTYLINE HCL [Concomitant]

REACTIONS (10)
  - ABDOMINAL DISTENSION [None]
  - BLOOD SODIUM DECREASED [None]
  - DRY MOUTH [None]
  - FEELING ABNORMAL [None]
  - GASTRIC ULCER [None]
  - HIATUS HERNIA [None]
  - NEUROPATHY PERIPHERAL [None]
  - PANCREATITIS [None]
  - WEIGHT DECREASED [None]
  - WEIGHT INCREASED [None]
